FAERS Safety Report 15962162 (Version 1)
Quarter: 2019Q1

REPORT INFORMATION
  Report Type: Spontaneous
  Country: IT (occurrence: IT)
  Receive Date: 20190214
  Receipt Date: 20190214
  Transmission Date: 20190417
  Serious: Yes (Hospitalization)
  Sender: FDA-Public Use
  Company Number: IT-BAYER-2019-031467

PATIENT
  Age: 74 Year
  Sex: Female

DRUGS (1)
  1. CARDIOASPIRIN 100 MG [Suspect]
     Active Substance: ASPIRIN
     Indication: ATRIAL FIBRILLATION
     Dosage: 100 MG, QD
     Route: 048
     Dates: start: 20150101, end: 20190128

REACTIONS (2)
  - Medication error [Unknown]
  - Cerebral ischaemia [Unknown]

NARRATIVE: CASE EVENT DATE: 20190128
